FAERS Safety Report 9234113 (Version 2)
Quarter: 2013Q2

REPORT INFORMATION
  Report Type: Spontaneous
  Country: ES (occurrence: ES)
  Receive Date: 20130416
  Receipt Date: 20130502
  Transmission Date: 20140414
  Serious: Yes (Other)
  Sender: FDA-Public Use
  Company Number: ES-ELI_LILLY_AND_COMPANY-ES201304002157

PATIENT
  Age: 80 Year
  Sex: Female
  Weight: 114 kg

DRUGS (14)
  1. FORSTEO [Suspect]
     Indication: OSTEOPOROSIS
     Dosage: 20 UG, QD
     Route: 058
     Dates: start: 20130406
  2. FORSTEO [Suspect]
     Dosage: 20 UG, QD
     Route: 058
     Dates: start: 20130406
  3. MIXTARD 30                         /00806401/ [Concomitant]
     Indication: DIABETES MELLITUS
     Dosage: 30 IU, EACH MORNING
     Route: 058
  4. MIXTARD 30                         /00806401/ [Concomitant]
     Dosage: 20 IU, EACH EVENING
     Route: 058
  5. SEGURIL [Concomitant]
     Indication: RENAL FAILURE
     Dosage: 40 MG, BID
     Route: 048
  6. OMEPRAZOL [Concomitant]
     Indication: PROPHYLAXIS AGAINST GASTROINTESTINAL ULCER
     Dosage: 20 MG, QD
     Route: 048
  7. PARACETAMOL [Concomitant]
     Indication: ANALGESIC THERAPY
     Dosage: 1 G, TID
     Route: 048
  8. HESPERCORBIN [Concomitant]
     Indication: CHONDROPATHY
     Dosage: 1500 MG, QD
     Route: 048
  9. OMACOR [Concomitant]
     Indication: BLOOD TRIGLYCERIDES INCREASED
     Dosage: UNK, BID
     Route: 048
  10. SINTROM [Concomitant]
     Indication: ARRHYTHMIA
     Dosage: UNK
     Route: 048
  11. SIMVASTATINA [Concomitant]
     Indication: HYPERCHOLESTEROLAEMIA
     Dosage: 10 MG, QD
     Route: 048
  12. ARTEDIL [Concomitant]
     Indication: HYPERTENSION
     Dosage: 10 MG, QD
     Route: 048
  13. SPIRIVA [Concomitant]
     Dosage: UNK, EACH EVENING
  14. TERBASMIN [Concomitant]
     Indication: CHRONIC OBSTRUCTIVE PULMONARY DISEASE
     Dosage: UNK, PRN

REACTIONS (6)
  - Renal failure [Not Recovered/Not Resolved]
  - Chromaturia [Recovered/Resolved]
  - General physical health deterioration [Recovered/Resolved]
  - Fatigue [Recovered/Resolved]
  - Blood glucose decreased [Recovered/Resolved]
  - Blood iron increased [Unknown]
